FAERS Safety Report 15956345 (Version 1)
Quarter: 2019Q1

REPORT INFORMATION
  Report Type: Spontaneous
  Country: US (occurrence: US)
  Receive Date: 20190213
  Receipt Date: 20190213
  Transmission Date: 20190417
  Serious: Yes (Hospitalization, Disabling, Other)
  Sender: FDA-Public Use
  Company Number: None

PATIENT
  Age: 73 Year
  Sex: Male
  Weight: 65.7 kg

DRUGS (1)
  1. IMFINZI [Suspect]
     Active Substance: DURVALUMAB
     Indication: LUNG NEOPLASM MALIGNANT
     Dosage: ?          OTHER STRENGTH:DON;QUANTITY:23 IV;OTHER FREQUENCY:BI-MONTLY;?
     Route: 042
     Dates: start: 20180201, end: 20190123

REACTIONS (5)
  - Decreased appetite [None]
  - Thirst [None]
  - Muscle atrophy [None]
  - Weight decreased [None]
  - Confusional state [None]

NARRATIVE: CASE EVENT DATE: 20181212
